FAERS Safety Report 10884729 (Version 2)
Quarter: 2015Q2

REPORT INFORMATION
  Report Type: Spontaneous
  Country: JP (occurrence: JP)
  Receive Date: 20150304
  Receipt Date: 20150420
  Transmission Date: 20150821
  Serious: Yes (Disabling)
  Sender: FDA-Public Use
  Company Number: JP-ROCHE-1498356

PATIENT
  Age: 70 Year
  Sex: Female
  Weight: 52 kg

DRUGS (18)
  1. ONON [Concomitant]
     Active Substance: PRANLUKAST
  2. CLARITH [Concomitant]
     Active Substance: CLARITHROMYCIN
  3. XOLAIR [Suspect]
     Active Substance: OMALIZUMAB
     Route: 058
     Dates: start: 20130620, end: 20130718
  4. XOLAIR [Suspect]
     Active Substance: OMALIZUMAB
     Route: 058
     Dates: start: 2014
  5. XOLAIR [Suspect]
     Active Substance: OMALIZUMAB
     Route: 058
     Dates: start: 20140422, end: 20140819
  6. RHYTHMY [Concomitant]
     Active Substance: RILMAZAFONE HYDROCHLORIDE
  7. MEPTIN [Concomitant]
     Active Substance: PROCATEROL HYDROCHLORIDE
  8. XOLAIR [Suspect]
     Active Substance: OMALIZUMAB
     Route: 058
     Dates: start: 201311
  9. XOLAIR [Suspect]
     Active Substance: OMALIZUMAB
     Route: 058
     Dates: start: 20140819, end: 20140819
  10. XOLAIR [Suspect]
     Active Substance: OMALIZUMAB
     Indication: ASTHMA
     Route: 058
     Dates: start: 20090928, end: 20130718
  11. XOLAIR [Suspect]
     Active Substance: OMALIZUMAB
     Route: 058
     Dates: start: 20130924, end: 20140325
  12. ADOAIR [Concomitant]
     Active Substance: FLUTICASONE PROPIONATE\SALMETEROL XINAFOATE
  13. MUCODYNE [Concomitant]
     Active Substance: CARBOCYSTEINE
  14. VENETLIN [Concomitant]
     Active Substance: ALBUTEROL SULFATE
  15. RIZABEN [Concomitant]
     Active Substance: TRANILAST
  16. BISOLVON [Concomitant]
     Active Substance: BROMHEXINE HYDROCHLORIDE
  17. LIVOSTIN [Concomitant]
     Active Substance: LEVOCABASTINE HYDROCHLORIDE
  18. NASONEX [Concomitant]
     Active Substance: MOMETASONE FUROATE

REACTIONS (2)
  - Rheumatoid arthritis [Recovered/Resolved]
  - Head discomfort [Recovering/Resolving]

NARRATIVE: CASE EVENT DATE: 20141208
